FAERS Safety Report 8969810 (Version 2)
Quarter: 2013Q1

REPORT INFORMATION
  Report Type: Spontaneous
  Country: JP (occurrence: JP)
  Receive Date: 20121217
  Receipt Date: 20130123
  Transmission Date: 20140127
  Serious: Yes (Hospitalization, Disabling, Other)
  Sender: FDA-Public Use
  Company Number: JP-B.I. PHARMACEUTICALS,INC./RIDGEFIELD-2012-BI-03441NB

PATIENT
  Age: 76 Year
  Sex: Male

DRUGS (4)
  1. PRADAXA [Suspect]
     Indication: ATRIAL FIBRILLATION
     Dosage: 220 MG
     Route: 048
     Dates: start: 20120612, end: 20121211
  2. AMLODIN [Concomitant]
     Dosage: 5 MG
     Route: 065
     Dates: start: 20080330
  3. BLOPRESS [Concomitant]
     Route: 065
  4. ARICEPT [Concomitant]
     Route: 065

REACTIONS (3)
  - Cerebral infarction [Not Recovered/Not Resolved]
  - Cerebral infarction [Not Recovered/Not Resolved]
  - Drug effect incomplete [Unknown]
